FAERS Safety Report 11689618 (Version 1)
Quarter: 2015Q4

REPORT INFORMATION
  Report Type: Spontaneous
  Country: US (occurrence: US)
  Receive Date: 20151102
  Receipt Date: 20151102
  Transmission Date: 20160304
  Serious: Yes (Other)
  Sender: FDA-Public Use
  Company Number: US-PFIZER INC-2015366060

PATIENT
  Age: 30 Year
  Sex: Female
  Weight: 53.52 kg

DRUGS (5)
  1. ESTROGEN [Concomitant]
     Active Substance: ESTRONE\SUS SCROFA OVARY
     Indication: HORMONE THERAPY
     Dosage: UNK
  2. GENOTROPIN MQ [Suspect]
     Active Substance: SOMATROPIN
     Indication: HYPOPITUITARISM
     Dosage: 2 MG, 1X/DAY
     Dates: start: 2001
  3. CORTISOL [Concomitant]
     Active Substance: HYDROCORTISONE
     Indication: HORMONE THERAPY
     Dosage: UNK
  4. PROGESTERONE. [Concomitant]
     Active Substance: PROGESTERONE
     Indication: HORMONE THERAPY
     Dosage: UNK
  5. SYNTHROID [Concomitant]
     Active Substance: LEVOTHYROXINE SODIUM
     Indication: HORMONE THERAPY
     Dosage: UNK

REACTIONS (12)
  - Appendicitis [Not Recovered/Not Resolved]
  - Accidental exposure to product [Unknown]
  - Hypersomnia [Not Recovered/Not Resolved]
  - Diarrhoea [Not Recovered/Not Resolved]
  - Rash [Recovered/Resolved]
  - Weight decreased [Not Recovered/Not Resolved]
  - Eating disorder [Not Recovered/Not Resolved]
  - Eczema [Recovered/Resolved]
  - Intestinal obstruction [Not Recovered/Not Resolved]
  - Constipation [Not Recovered/Not Resolved]
  - Irritable bowel syndrome [Not Recovered/Not Resolved]
  - Product quality issue [Unknown]

NARRATIVE: CASE EVENT DATE: 2001
